FAERS Safety Report 20676709 (Version 1)
Quarter: 2022Q2

REPORT INFORMATION
  Report Type: Spontaneous
  Country: CA (occurrence: CA)
  Receive Date: 20220406
  Receipt Date: 20220406
  Transmission Date: 20220721
  Serious: Yes (Hospitalization, Other)
  Sender: FDA-Public Use
  Company Number: CA-TEVA-2022-CA-2022827

PATIENT
  Age: 47 Year
  Sex: Male
  Weight: 90 kg

DRUGS (2)
  1. DOXYCYCLINE [Suspect]
     Active Substance: DOXYCYCLINE
     Indication: Sexually transmitted disease
     Dosage: 2 DOSAGE FORMS DAILY;
     Route: 048
  2. PREGABALIN [Concomitant]
     Active Substance: PREGABALIN

REACTIONS (8)
  - Anxiety [Unknown]
  - Chest pain [Unknown]
  - Fatigue [Unknown]
  - Head discomfort [Unknown]
  - Neck pain [Unknown]
  - Panic attack [Unknown]
  - Tachycardia [Unknown]
  - Tremor [Unknown]
